FAERS Safety Report 7955405-9 (Version None)
Quarter: 2011Q4

REPORT INFORMATION
  Report Type: 
  Country: None (occurrence: None)
  Receive Date: 20111202
  Receipt Date: 20111122
  Transmission Date: 20120403
  Serious: Yes (Other)
  Sender: FDA-Public Use
  Company Number: GB-ABBOTT-11P-167-0877080-00

PATIENT
  Age: 30 Year
  Sex: Male

DRUGS (5)
  1. CITALOPRAM HYDROBROMIDE [Suspect]
     Indication: PRODUCT USED FOR UNKNOWN INDICATION
     Route: 065
  2. CLOZARIL [Suspect]
     Indication: SCHIZOPHRENIA
     Route: 048
     Dates: start: 20110329
  3. VALPROATE SODIUM [Suspect]
     Indication: PRODUCT USED FOR UNKNOWN INDICATION
     Route: 065
     Dates: end: 20111028
  4. DEPAKOTE [Concomitant]
     Indication: PRODUCT USED FOR UNKNOWN INDICATION
  5. HALOPERIDOL [Concomitant]
     Indication: PRODUCT USED FOR UNKNOWN INDICATION

REACTIONS (14)
  - GASTRITIS [None]
  - PSYCHOTIC DISORDER [None]
  - VOMITING [None]
  - INAPPROPRIATE AFFECT [None]
  - SEDATION [None]
  - AGGRESSION [None]
  - MENTAL IMPAIRMENT [None]
  - COGNITIVE DISORDER [None]
  - HEART RATE INCREASED [None]
  - AGITATION [None]
  - GENDER IDENTITY DISORDER [None]
  - FATIGUE [None]
  - CONVULSION [None]
  - DELIRIUM [None]
